FAERS Safety Report 5929946-X (Version None)
Quarter: 2008Q4

REPORT INFORMATION
  Report Type: 
  Country: None (occurrence: None)
  Receive Date: 20081024
  Receipt Date: 20081015
  Transmission Date: 20090506
  Serious: Yes (Death, Hospitalization)
  Sender: FDA-Public Use
  Company Number: US-PFIZER INC-2008068984

PATIENT
  Sex: Male

DRUGS (1)
  1. PROCARDIA [Suspect]

REACTIONS (1)
  - DEATH [None]
